FAERS Safety Report 5942803-8 (Version None)
Quarter: 2008Q4

REPORT INFORMATION
  Report Type: 
  Country: None (occurrence: None)
  Receive Date: 20081103
  Receipt Date: 20081022
  Transmission Date: 20090506
  Serious: Yes (Death, Hospitalization)
  Sender: FDA-Public Use
  Company Number: POMP-1000361

PATIENT
  Age: 3 Year
  Sex: Male
  Weight: 20 kg

DRUGS (2)
  1. MYOZYME [Suspect]
     Indication: GLYCOGEN STORAGE DISEASE TYPE II
     Dosage: 20 MG/KG, Q2W; INTRAVENOUS; 40 MG/KG, Q2W; INTRAVENOUS
     Route: 042
     Dates: start: 20070901, end: 20071201
  2. MYOZYME [Suspect]
     Indication: GLYCOGEN STORAGE DISEASE TYPE II
     Dosage: 20 MG/KG, Q2W; INTRAVENOUS; 40 MG/KG, Q2W; INTRAVENOUS
     Route: 042
     Dates: start: 20050329, end: 20081001

REACTIONS (23)
  - C-REACTIVE PROTEIN INCREASED [None]
  - CARDIAC FAILURE [None]
  - CARDIOMEGALY [None]
  - DEHYDRATION [None]
  - DISEASE PROGRESSION [None]
  - FLUID OVERLOAD [None]
  - HYPOXIC ENCEPHALOPATHY [None]
  - LEUKOCYTOSIS [None]
  - MENTAL STATUS CHANGES [None]
  - MUSCULAR WEAKNESS [None]
  - MYOPATHY [None]
  - PERICARDIAL EFFUSION [None]
  - PLEURAL EFFUSION [None]
  - PNEUMONIA [None]
  - PYREXIA [None]
  - RESPIRATORY DISTRESS [None]
  - RESPIRATORY FAILURE [None]
  - RIGHT VENTRICLE OUTFLOW TRACT OBSTRUCTION [None]
  - SEDATION [None]
  - SHIFT TO THE LEFT [None]
  - THROMBOCYTOPENIA [None]
  - TRANSAMINASES INCREASED [None]
  - WEIGHT INCREASED [None]
